FAERS Safety Report 8993713 (Version 1)
Quarter: 2013Q1

REPORT INFORMATION
  Report Type: Spontaneous
  Country: US (occurrence: US)
  Receive Date: 20130102
  Receipt Date: 20130102
  Transmission Date: 20140127
  Serious: No
  Sender: FDA-Public Use
  Company Number: US-AMGEN-USASP2012082922

PATIENT
  Sex: Female
  Weight: 129 kg

DRUGS (18)
  1. ENBREL [Suspect]
     Indication: RHEUMATOID ARTHRITIS
     Dosage: 50 MG, QWK
     Route: 058
     Dates: start: 20070816
  2. PREDNISONE [Concomitant]
     Dosage: UNK
  3. PLAQUENIL                          /00072602/ [Concomitant]
     Dosage: UNK
  4. EFFEXOR [Concomitant]
     Dosage: UNK
  5. CRESTOR [Concomitant]
     Dosage: UNK
  6. PROZAC [Concomitant]
     Dosage: UNK
  7. QVAR [Concomitant]
     Dosage: UNK
  8. VICODIN [Concomitant]
     Dosage: UNK
  9. FUMARATE DISODIUM [Concomitant]
     Dosage: UNK
  10. PEPCID                             /00706001/ [Concomitant]
     Dosage: UNK
  11. FOLIC ACID [Concomitant]
     Dosage: UNK
  12. CATAPRESS [Concomitant]
     Dosage: UNK
  13. ASPIRIN [Concomitant]
     Dosage: UNK
  14. MULTIVITAMINS, PLAIN [Concomitant]
     Dosage: UNK
  15. SYNTHROID [Concomitant]
     Dosage: UNK
  16. ALLOPURINOL [Concomitant]
     Dosage: UNK
  17. POTASSIUM CHLORIDE [Concomitant]
     Dosage: UNK
  18. MAGNESIUM [Concomitant]
     Dosage: UNK

REACTIONS (1)
  - Bronchitis [Unknown]
